FAERS Safety Report 19919826 (Version 2)
Quarter: 2021Q4

REPORT INFORMATION
  Report Type: Report from Study
  Country: CA (occurrence: CA)
  Receive Date: 20211005
  Receipt Date: 20211018
  Transmission Date: 20220303
  Serious: Yes (Other)
  Sender: FDA-Public Use
  Company Number: CA-TAKEDA-CA202031060

PATIENT
  Sex: Female

DRUGS (1)
  1. CUVITRU [Suspect]
     Active Substance: HUMAN IMMUNOGLOBULIN G
     Indication: Granulomatosis with polyangiitis
     Dosage: 20 GRAM, 1/WEEK
     Route: 065
     Dates: start: 20200914

REACTIONS (7)
  - Infusion site thrombosis [Unknown]
  - Pain [Unknown]
  - Infusion site pain [Unknown]
  - Off label use [Unknown]
  - Product container seal issue [Unknown]
  - Incorrect product administration duration [Unknown]
  - Needle issue [Unknown]
